FAERS Safety Report 9048763 (Version 1)
Quarter: 2013Q1

REPORT INFORMATION
  Report Type: Spontaneous
  Country: US (occurrence: None)
  Receive Date: 20130130
  Receipt Date: 20130130
  Transmission Date: 20140127
  Serious: No
  Sender: FDA-Public Use
  Company Number: None

PATIENT
  Age: 66 Year
  Sex: Female

DRUGS (1)
  1. FORTEO 600MCG/2.4ML PEN [Suspect]
     Dosage: INJEC 20MCG  EVERY DAY AS DIRECTED ** EXPIRES 28 DAYS AFTER OPENING**
     Route: 058

REACTIONS (1)
  - Dyspnoea [None]
